FAERS Safety Report 6499131-4 (Version None)
Quarter: 2009Q4

REPORT INFORMATION
  Report Type: 
  Country: None (occurrence: None)
  Receive Date: 20091215
  Receipt Date: 20091130
  Transmission Date: 20100525
  Serious: Yes (Other)
  Sender: FDA-Public Use
  Company Number: JP-GENENTECH-295688

PATIENT

DRUGS (4)
  1. RITUXIMAB [Suspect]
     Indication: NEPHROTIC SYNDROME
     Dosage: 375 MG/M2, UNK
     Route: 065
  2. MYCOPHENOLATE MOFETIL [Suspect]
     Indication: NEPHROTIC SYNDROME
     Dosage: 250 UNK, UNK
     Route: 065
  3. CYCLOSPORINE [Suspect]
     Indication: NEPHROTIC SYNDROME
     Dosage: UNK
     Route: 065
  4. CYCLOSPORINE [Suspect]
     Dosage: 20 MG, Q4W
     Route: 065

REACTIONS (3)
  - ANAEMIA [None]
  - KIDNEY FIBROSIS [None]
  - ORAL HERPES [None]
